FAERS Safety Report 8296428-2 (Version None)
Quarter: 2012Q2

REPORT INFORMATION
  Report Type: 
  Country: None (occurrence: None)
  Receive Date: 20120418
  Receipt Date: 20120410
  Transmission Date: 20120825
  Serious: Yes (Death)
  Sender: FDA-Public Use
  Company Number: JP-MEDIMMUNE-MEDI-0015281

PATIENT
  Sex: Female
  Weight: 6.08 kg

DRUGS (7)
  1. INULIN [Concomitant]
     Route: 042
     Dates: start: 20111013, end: 20111013
  2. ERYTHROMYCIN ETHYLSUCCINATE [Concomitant]
     Route: 048
     Dates: end: 20111013
  3. L-CARBOCISTEINE [Concomitant]
     Route: 048
     Dates: end: 20111013
  4. SYNAGIS [Suspect]
     Route: 030
     Dates: start: 20110907, end: 20111013
  5. FUROSEMIDE [Concomitant]
     Indication: CARDIAC FAILURE
     Route: 048
     Dates: end: 20111013
  6. PRANLUKAST HYDRATE [Concomitant]
     Route: 048
     Dates: end: 20111013
  7. AMBROXOL HYDROCHLORIDE [Concomitant]
     Route: 048
     Dates: end: 20111013

REACTIONS (6)
  - ACUTE RESPIRATORY FAILURE [None]
  - CARDIAC ARREST [None]
  - RESPIRATORY ARREST [None]
  - BRADYCARDIA [None]
  - PALLOR [None]
  - CRYING [None]
